FAERS Safety Report 26168660 (Version 1)
Quarter: 2025Q4

REPORT INFORMATION
  Report Type: Spontaneous
  Country: US (occurrence: None)
  Receive Date: 20251217
  Receipt Date: 20251217
  Transmission Date: 20260117
  Serious: No
  Sender: ENDO
  Company Number: US-ENDO USA, INC.-2024-050801

PATIENT
  Age: 101 Year
  Sex: Female

DRUGS (2)
  1. MINOXIDIL [Suspect]
     Active Substance: MINOXIDIL
     Indication: Hypertension
     Dosage: 2.5 MILLIGRAM, UNKNOWN
     Route: 065
  2. MINOXIDIL [Suspect]
     Active Substance: MINOXIDIL
     Dosage: 2.5 MILLIGRAM, UNKNOWN
     Route: 065

REACTIONS (5)
  - Tremor [Unknown]
  - Fatigue [Recovering/Resolving]
  - Asthenia [Unknown]
  - Gastrointestinal disorder [Unknown]
  - Drug ineffective [Unknown]
